FAERS Safety Report 4533110-9 (Version None)
Quarter: 2004Q4

REPORT INFORMATION
  Report Type: 
  Country: None (occurrence: None)
  Receive Date: 20041210
  Receipt Date: 20040922
  Transmission Date: 20050328
  Serious: No
  Sender: FDA-Public Use
  Company Number: 2004-00549

PATIENT
  Age: 76 Year
  Sex: Female
  Weight: 63.5 kg

DRUGS (1)
  1. VELCADE [Suspect]
     Indication: MULTIPLE MYELOMA
     Dosage: 2/WEEK
     Dates: start: 20040301, end: 20040917

REACTIONS (3)
  - CONSTIPATION [None]
  - DIARRHOEA [None]
  - NEUROPATHY PERIPHERAL [None]
